FAERS Safety Report 7755389-2 (Version None)
Quarter: 2011Q3

REPORT INFORMATION
  Report Type: 
  Country: None (occurrence: None)
  Receive Date: 20110914
  Receipt Date: 20110830
  Transmission Date: 20111222
  Serious: Yes (Other)
  Sender: FDA-Public Use
  Company Number: DSJ-2011-18778

PATIENT
  Age: 82 Year
  Sex: Male

DRUGS (2)
  1. OLMESARTAN MEDOXOMIL [Suspect]
     Indication: ESSENTIAL HYPERTENSION
     Dosage: 20 MG, PER ORAL
     Route: 048
     Dates: start: 20100309, end: 20100427
  2. CETAPRIL (ALACEPRIL) (ALACEPRIL) [Concomitant]

REACTIONS (1)
  - ORTHOSTATIC HYPOTENSION [None]
